FAERS Safety Report 8307055-2 (Version None)
Quarter: 2012Q2

REPORT INFORMATION
  Report Type: 
  Country: None (occurrence: None)
  Receive Date: 20120419
  Receipt Date: 20120417
  Transmission Date: 20120825
  Serious: Yes (Other)
  Sender: FDA-Public Use
  Company Number: ADR-2011-11239

PATIENT
  Sex: Male

DRUGS (1)
  1. LIORESAL [Suspect]
     Indication: MUSCLE SPASTICITY
     Dosage: SEE B5 MCG, DAILY, INTR
     Route: 037

REACTIONS (4)
  - INTRACRANIAL HYPOTENSION [None]
  - MUSCLE SPASTICITY [None]
  - DEVICE DAMAGE [None]
  - IMPLANT SITE EFFUSION [None]
